FAERS Safety Report 9222779 (Version 2)
Quarter: 2013Q2

REPORT INFORMATION
  Report Type: Report from Study
  Country: CN (occurrence: CN)
  Receive Date: 20130410
  Receipt Date: 20130503
  Transmission Date: 20140414
  Serious: Yes (Death, Other)
  Sender: FDA-Public Use
  Company Number: CN-ROCHE-1208776

PATIENT
  Sex: 0

DRUGS (1)
  1. ALTEPLASE [Suspect]
     Indication: THROMBOSIS
     Dosage: ALTEPLASE ADMINISTERED VIA CATHETER
     Route: 065

REACTIONS (2)
  - Death [Fatal]
  - Subarachnoid haemorrhage [Unknown]
